FAERS Safety Report 22131953 (Version 1)
Quarter: 2023Q1

REPORT INFORMATION
  Report Type: Report from Study
  Country: US (occurrence: US)
  Receive Date: 20230323
  Receipt Date: 20230323
  Transmission Date: 20230417
  Serious: Yes (Hospitalization, Other)
  Sender: FDA-Public Use
  Company Number: US-002147023-NVSC2023US061109

PATIENT
  Age: 7 Year
  Sex: Female

DRUGS (3)
  1. ILARIS [Suspect]
     Active Substance: CANAKINUMAB
     Indication: Still^s disease
     Dosage: 45 MG, Q4 WEEKS
     Route: 058
     Dates: start: 20180118, end: 201811
  2. ILARIS [Suspect]
     Active Substance: CANAKINUMAB
     Dosage: UNK
     Route: 065
     Dates: start: 20190705
  3. ILARIS [Suspect]
     Active Substance: CANAKINUMAB
     Dosage: 30 MG, Q4W
     Route: 065
     Dates: start: 202204

REACTIONS (16)
  - Cytopenia [Unknown]
  - Activated partial thromboplastin time prolonged [Unknown]
  - Arthralgia [Unknown]
  - Pyrexia [Unknown]
  - Serum ferritin increased [Unknown]
  - Transaminases increased [Unknown]
  - Immunosuppression [Not Recovered/Not Resolved]
  - Still^s disease [Unknown]
  - Condition aggravated [Unknown]
  - Bronchial wall thickening [Unknown]
  - Hypermobility syndrome [Unknown]
  - Foot deformity [Unknown]
  - Refractive amblyopia [Unknown]
  - Inflammation [Unknown]
  - Pain in extremity [Unknown]
  - Viral infection [Unknown]

NARRATIVE: CASE EVENT DATE: 20181127
